FAERS Safety Report 21880468 (Version 4)
Quarter: 2023Q4

REPORT INFORMATION
  Report Type: Report from Study
  Country: AT (occurrence: AT)
  Receive Date: 20230118
  Receipt Date: 20231122
  Transmission Date: 20240109
  Serious: Yes (Hospitalization)
  Sender: FDA-Public Use
  Company Number: AT-ROCHE-3226138

PATIENT
  Age: 64 Year
  Sex: Female

DRUGS (57)
  1. HERCEPTIN [Suspect]
     Active Substance: TRASTUZUMAB
     Indication: HER2 positive breast cancer
     Dosage: 510 MILLIGRAM, Q3W
     Route: 042
     Dates: start: 20190315, end: 20200103
  2. HERCEPTIN [Suspect]
     Active Substance: TRASTUZUMAB
     Dosage: MOST RECENT DOSE PRIOR TO AE
     Route: 065
     Dates: start: 20201021
  3. HERCEPTIN [Suspect]
     Active Substance: TRASTUZUMAB
     Dosage: 680 MILLIGRAM, Q3W
     Route: 042
     Dates: start: 20190315, end: 20190315
  4. HERCEPTIN [Suspect]
     Active Substance: TRASTUZUMAB
     Dosage: 600 MILLIGRAM, Q3W
     Route: 042
     Dates: start: 20201021, end: 20210429
  5. HERCEPTIN [Suspect]
     Active Substance: TRASTUZUMAB
     Dosage: 510 MILLIGRAM, Q3W
     Route: 042
     Dates: start: 20190403, end: 20200103
  6. KADCYLA [Suspect]
     Active Substance: ADO-TRASTUZUMAB EMTANSINE
     Indication: HER2 positive breast cancer
     Dosage: 292 MILLIGRAM, Q3W
     Route: 042
     Dates: start: 20200129, end: 20200826
  7. KADCYLA [Suspect]
     Active Substance: ADO-TRASTUZUMAB EMTANSINE
     Dosage: MOST RECENT DOSE PRIOR TO AE
     Route: 042
     Dates: start: 20200826
  8. PERJETA [Suspect]
     Active Substance: PERTUZUMAB
     Indication: HER2 positive breast cancer
     Dosage: 420 MILLIGRAM, Q3W
     Route: 042
     Dates: start: 20190315
  9. PERJETA [Suspect]
     Active Substance: PERTUZUMAB
     Dosage: 840 MILLIGRAM, Q3W
     Route: 042
     Dates: start: 20190315, end: 20190315
  10. PERJETA [Suspect]
     Active Substance: PERTUZUMAB
     Dosage: 420 MILLIGRAM, Q3W
     Route: 042
     Dates: start: 20190403, end: 20200103
  11. PERJETA [Suspect]
     Active Substance: PERTUZUMAB
     Dosage: MOST RECENT DOSE PRIOR TO AE
     Route: 042
     Dates: start: 20200103
  12. XELODA [Suspect]
     Active Substance: CAPECITABINE
     Indication: HER2 positive breast cancer
     Dosage: 3500 MILLIGRAM, FREQUENCY: OTHER
     Route: 048
     Dates: start: 20201031, end: 20201120
  13. XELODA [Suspect]
     Active Substance: CAPECITABINE
     Dosage: MOST RECENT DOSE PRIOR TO THE EVENT: 19/JAN/2021
     Route: 065
     Dates: start: 20210119
  14. XELODA [Suspect]
     Active Substance: CAPECITABINE
     Dosage: 2000 MILLIGRAM
     Route: 048
     Dates: start: 20201121, end: 20201218
  15. XELODA [Suspect]
     Active Substance: CAPECITABINE
     Dosage: 2000 MILLIGRAM
     Route: 048
     Dates: start: 20210119, end: 20210522
  16. XELODA [Suspect]
     Active Substance: CAPECITABINE
     Dosage: 3000 MG,MOST RECENT DOSE PRIOR
     Route: 048
     Dates: start: 20201121, end: 20201218
  17. NAVELBINE [Suspect]
     Active Substance: VINORELBINE TARTRATE
     Indication: HER2 positive breast cancer
     Dosage: 58 MILLIGRAM, Q3W
     Route: 042
     Dates: start: 20190315, end: 20190625
  18. NAVELBINE [Suspect]
     Active Substance: VINORELBINE TARTRATE
     Dosage: 58 MILLIGRAM, Q3W
     Route: 042
     Dates: start: 20190918, end: 20200103
  19. NAVELBINE [Suspect]
     Active Substance: VINORELBINE TARTRATE
     Dosage: 28 MILLIGRAM, Q3W
     Route: 042
     Dates: start: 20190918, end: 20200103
  20. DOXORUBICIN [Suspect]
     Active Substance: DOXORUBICIN
     Indication: HER2 positive breast cancer
     Dosage: 30 MILLIGRAM/SQ. METER, Q3W
     Route: 042
     Dates: start: 20220727, end: 20220818
  21. TUCATINIB [Suspect]
     Active Substance: TUCATINIB
     Indication: HER2 positive breast cancer
     Dosage: 200 MILLIGRAM, BID
     Route: 048
     Dates: start: 20210509, end: 20210528
  22. TUCATINIB [Suspect]
     Active Substance: TUCATINIB
     Dosage: 300 MILLIGRAM, BID
     Route: 048
     Dates: start: 20201120, end: 20210108
  23. TUCATINIB [Suspect]
     Active Substance: TUCATINIB
     Dosage: 250 MILLIGRAM, BID
     Route: 048
     Dates: start: 20210108, end: 20210428
  24. SACITUZUMAB GOVITECAN [Suspect]
     Active Substance: SACITUZUMAB GOVITECAN
     Indication: HER2 positive breast cancer
     Dosage: 12 MILLIGRAM Q21D (D1+D8, Q21D)
     Route: 042
     Dates: start: 20221207, end: 20230105
  25. SACITUZUMAB GOVITECAN [Suspect]
     Active Substance: SACITUZUMAB GOVITECAN
     Dosage: 40 MILLIGRAM (DAY 1 OF EACH CYCLE)
     Route: 065
     Dates: start: 20230209
  26. FAM-TRASTUZUMAB DERUXTECAN-NXKI [Suspect]
     Active Substance: FAM-TRASTUZUMAB DERUXTECAN-NXKI
     Indication: HER2 positive breast cancer
     Dosage: 4.4 MILLIGRAM/KILOGRAM, Q3W
     Route: 042
     Dates: start: 20210721, end: 20210811
  27. FAM-TRASTUZUMAB DERUXTECAN-NXKI [Suspect]
     Active Substance: FAM-TRASTUZUMAB DERUXTECAN-NXKI
     Dosage: 3.2 MILLIGRAM/KILOGRAM, Q3W
     Route: 042
     Dates: start: 20220302, end: 20220512
  28. FAM-TRASTUZUMAB DERUXTECAN-NXKI [Suspect]
     Active Substance: FAM-TRASTUZUMAB DERUXTECAN-NXKI
     Dosage: 5.4 MILLIGRAM/KILOGRAM, Q3W
     Route: 042
     Dates: start: 20210628, end: 20210628
  29. FAM-TRASTUZUMAB DERUXTECAN-NXKI [Suspect]
     Active Substance: FAM-TRASTUZUMAB DERUXTECAN-NXKI
     Dosage: 4.4 MILLIGRAM/KILOGRAM, Q3W
     Route: 042
     Dates: start: 20220118, end: 20220209
  30. FAM-TRASTUZUMAB DERUXTECAN-NXKI [Suspect]
     Active Substance: FAM-TRASTUZUMAB DERUXTECAN-NXKI
     Dosage: 5.4 MILLIGRAM/KILOGRAM, Q3W
     Route: 042
     Dates: start: 20210901, end: 20211228
  31. HALAVEN [Suspect]
     Active Substance: ERIBULIN MESYLATE
     Indication: HER2 positive breast cancer
     Dosage: 1.23 MILLIGRAM/SQ. METER, Q21D (D1+D8)
     Route: 042
     Dates: start: 20230209, end: 20230322
  32. HYALURONIDASE (HUMAN RECOMBINANT)\TRASTUZUMAB [Suspect]
     Active Substance: HYALURONIDASE (HUMAN RECOMBINANT)\TRASTUZUMAB
     Indication: HER2 positive breast cancer
     Dosage: 600 MILLIGRAM, Q3W
     Route: 058
     Dates: start: 20201021, end: 20210429
  33. PHESGO [Suspect]
     Active Substance: HYALURONIDASE-ZZXF\PERTUZUMAB\TRASTUZUMAB
     Indication: HER2 positive breast cancer
     Dosage: 600 MILLIGRAM, Q3W
     Route: 058
     Dates: start: 20220627, end: 20220818
  34. POLYETHYLENE GLYCOL 3350\POTASSIUM CHLORIDE\SODIUM BICARBONATE\SODIUM [Concomitant]
     Active Substance: POLYETHYLENE GLYCOL 3350\POTASSIUM CHLORIDE\SODIUM BICARBONATE\SODIUM CHLORIDE
     Indication: Prophylaxis
     Dosage: ONGOING = CHECKED
     Route: 065
     Dates: start: 20210722
  35. ZYPREXA [Concomitant]
     Active Substance: OLANZAPINE
     Indication: Nausea
     Dosage: UNK, ONGOING = CHECKED D14
     Route: 065
     Dates: start: 20210721
  36. SUCRALFATE [Concomitant]
     Active Substance: SUCRALFATE
     Indication: Prophylaxis
     Dosage: 1 GRAM (ONGOING = CHECKED)
     Route: 065
     Dates: start: 20190403
  37. APREPITANT [Concomitant]
     Active Substance: APREPITANT
     Dosage: 125 MILLIGRAM (ONGOING = CHECKED D1 OF EACH CYCLE OF TDXT)
     Route: 065
     Dates: start: 20210721, end: 20220512
  38. APREPITANT [Concomitant]
     Active Substance: APREPITANT
     Dosage: 80 MILLIGRAM (ONGOING = CHECKED D2+D3 OF EACH CYCLE OF TDXT)
     Route: 065
     Dates: start: 20210722, end: 20220514
  39. NADROPARIN CALCIUM [Concomitant]
     Active Substance: NADROPARIN CALCIUM
     Indication: Prophylaxis
     Dosage: UNK UNK, QD (ONGOING = CHECKED0.30 ML (MILLILITER; CM3)
     Route: 058
     Dates: start: 20190208
  40. LOPERAMIDE HYDROCHLORIDE [Concomitant]
     Active Substance: LOPERAMIDE HYDROCHLORIDE
     Indication: Prophylaxis
     Dosage: 2 MILLIGRAM (ONGOING = CHECKED)
     Route: 065
     Dates: start: 20190315
  41. ZOFRAN [Concomitant]
     Active Substance: ONDANSETRON HYDROCHLORIDE
     Indication: Prophylaxis
     Dosage: 8 MILLIGRAM (ONGOING = CHECKED)
     Route: 065
     Dates: start: 20190315
  42. ZOFRAN [Concomitant]
     Active Substance: ONDANSETRON HYDROCHLORIDE
     Dosage: 125 MG,ONGOING = CHECKEDD1 AND
     Route: 065
     Dates: start: 20221207, end: 20230105
  43. ZOFRAN [Concomitant]
     Active Substance: ONDANSETRON HYDROCHLORIDE
     Dosage: 8 MILLIGRAM
     Route: 065
     Dates: start: 20221208, end: 20230107
  44. ZOFRAN [Concomitant]
     Active Substance: ONDANSETRON HYDROCHLORIDE
     Dosage: 16 MILLIGRAM
     Route: 065
     Dates: start: 20230209
  45. ESOMEPRAZOLE [Concomitant]
     Active Substance: ESOMEPRAZOLE
     Indication: Prophylaxis
     Dosage: 40 MILLIGRAM, QD
     Route: 065
     Dates: start: 20190726
  46. ESOMEPRAZOLE [Concomitant]
     Active Substance: ESOMEPRAZOLE
     Indication: Abdominal pain upper
     Dosage: ONGOING = CHECKED
     Route: 065
     Dates: start: 20211215
  47. Paspertin [Concomitant]
     Indication: Nausea
     Dosage: 10 MILLIGRAM (ONGOING = CHECKED)
     Route: 065
     Dates: start: 20210708
  48. EMEND [Concomitant]
     Active Substance: APREPITANT
     Indication: Nausea
     Dosage: 2.5 MILLIGRAM (ONGOING = CHECKEDD1-14)
     Route: 065
     Dates: start: 20210721
  49. EMEND [Concomitant]
     Active Substance: APREPITANT
     Dosage: 125 MILLIGRAM (ONGOING = CHECKED, D1)
     Route: 065
     Dates: start: 20210722
  50. DEXAMETHASONE [Concomitant]
     Active Substance: DEXAMETHASONE
     Indication: Prophylaxis
     Dosage: 12MG,ONGOING = CHECKEDD1,2 A
     Route: 065
     Dates: start: 20210628, end: 20220514
  51. DEXAMETHASONE [Concomitant]
     Active Substance: DEXAMETHASONE
     Dosage: 4MG,ONGOING = CHECKEDD1,2
     Route: 065
     Dates: start: 20221208, end: 20230107
  52. DEXAMETHASONE [Concomitant]
     Active Substance: DEXAMETHASONE
     Dosage: 4MGDAY 1 OF EACH CYCLE OF
     Route: 065
     Dates: start: 20230209
  53. PREDNISOLONE SODIUM SUCCINATE [Concomitant]
     Active Substance: PREDNISOLONE SODIUM SUCCINATE
     Indication: Prophylaxis
     Dosage: 250 MG,D1 OF EACH CYCLE O
     Route: 065
     Dates: start: 20220627, end: 20220915
  54. ACETAMINOPHEN [Concomitant]
     Active Substance: ACETAMINOPHEN
     Indication: Prophylaxis
     Dosage: UNK
     Route: 065
     Dates: start: 20221207, end: 20230105
  55. AMOXICILLIN\CLAVULANATE POTASSIUM [Concomitant]
     Active Substance: AMOXICILLIN\CLAVULANATE POTASSIUM
     Dosage: GREATER EXANTHEMA AREA OF CLAVICULA
     Route: 065
     Dates: start: 20191016
  56. AMOXICILLIN\CLAVULANATE POTASSIUM [Concomitant]
     Active Substance: AMOXICILLIN\CLAVULANATE POTASSIUM
     Dosage: 1 GRAM, BID
     Route: 065
     Dates: start: 20191030, end: 20191107
  57. DIPHENHYDRAMINE [Concomitant]
     Active Substance: DIPHENHYDRAMINE
     Indication: Prophylaxis
     Dosage: 50 MILLIGRAM
     Route: 065
     Dates: start: 20221207, end: 20230105

REACTIONS (2)
  - Pneumothorax [Recovered/Resolved with Sequelae]
  - Pneumonia [Not Recovered/Not Resolved]

NARRATIVE: CASE EVENT DATE: 20221115
